FAERS Safety Report 5932721-3 (Version None)
Quarter: 2008Q4

REPORT INFORMATION
  Report Type: 
  Country: None (occurrence: None)
  Receive Date: 20081023
  Receipt Date: 20081014
  Transmission Date: 20090506
  Serious: Yes (Other)
  Sender: FDA-Public Use
  Company Number: 1000001383

PATIENT
  Age: 27 Year
  Sex: Female
  Weight: 79 kg

DRUGS (2)
  1. FOSFOMYCIN (FOSFOMYCIN TROMETAMOL) (POWDER) [Suspect]
     Indication: CYSTITIS
     Dosage: (ONCE), ORAL
     Route: 048
     Dates: start: 20081007, end: 20081007
  2. MULTI-VITAMIN [Concomitant]

REACTIONS (4)
  - CONFUSIONAL STATE [None]
  - CRYING [None]
  - DRUG EXPOSURE DURING PREGNANCY [None]
  - NAUSEA [None]
